FAERS Safety Report 17163344 (Version 1)
Quarter: 2019Q4

REPORT INFORMATION
  Report Type: Spontaneous
  Country: ES (occurrence: ES)
  Receive Date: 20191217
  Receipt Date: 20191217
  Transmission Date: 20200122
  Serious: Yes (Other)
  Sender: FDA-Public Use
  Company Number: ES-TEVA-2019-ES-1151986

PATIENT
  Sex: Female

DRUGS (1)
  1. COPAXONE [Suspect]
     Active Substance: GLATIRAMER ACETATE
     Indication: MULTIPLE SCLEROSIS
     Route: 058

REACTIONS (13)
  - Hemianaesthesia [Recovered/Resolved]
  - Ear pain [Recovering/Resolving]
  - Poor quality sleep [Recovering/Resolving]
  - Back pain [Recovering/Resolving]
  - Injection site atrophy [Recovering/Resolving]
  - Oropharyngeal pain [Recovering/Resolving]
  - Multiple sclerosis relapse [Recovered/Resolved]
  - Fatigue [Recovering/Resolving]
  - Pyramidal tract syndrome [Unknown]
  - Intervertebral disc protrusion [Recovering/Resolving]
  - Pyramidal tract syndrome [Recovering/Resolving]
  - Skin sensitisation [Recovered/Resolved]
  - Dizziness [Recovering/Resolving]

NARRATIVE: CASE EVENT DATE: 2019
